FAERS Safety Report 23278445 (Version 2)
Quarter: 2023Q4

REPORT INFORMATION
  Report Type: Spontaneous
  Country: NZ (occurrence: None)
  Receive Date: 20231208
  Receipt Date: 20231215
  Transmission Date: 20240110
  Serious: Yes (Life-Threatening, Hospitalization)
  Sender: FDA-Public Use
  Company Number: 2023A277077

PATIENT
  Age: 51 Year
  Sex: Male
  Weight: 75 kg

DRUGS (6)
  1. QUETIAPINE [Suspect]
     Active Substance: QUETIAPINE
     Route: 048
  2. METOPROLOL [Suspect]
     Active Substance: METOPROLOL
  3. AMITRIPTYLINE [Suspect]
     Active Substance: AMITRIPTYLINE
     Dosage: EXCESS OF 43 MG/KG
  4. CITALOPRAM [Suspect]
     Active Substance: CITALOPRAM HYDROBROMIDE
  5. QUINAPRIL [Suspect]
     Active Substance: QUINAPRIL
  6. ASPIRIN [Suspect]
     Active Substance: ASPIRIN

REACTIONS (10)
  - Intentional overdose [Unknown]
  - Generalised tonic-clonic seizure [Recovered/Resolved]
  - Tachycardia [Recovered/Resolved]
  - Agitation [Recovered/Resolved]
  - Patient uncooperative [Recovered/Resolved]
  - Unresponsive to stimuli [Recovered/Resolved]
  - Coma scale abnormal [Recovered/Resolved]
  - Blood glucose abnormal [Recovered/Resolved]
  - Mydriasis [Recovered/Resolved]
  - Cardiotoxicity [Recovered/Resolved]
